FAERS Safety Report 8030021-1 (Version None)
Quarter: 2012Q1

REPORT INFORMATION
  Report Type: 
  Country: None (occurrence: None)
  Receive Date: 20120109
  Receipt Date: 20111230
  Transmission Date: 20120608
  Serious: Yes (Other)
  Sender: FDA-Public Use
  Company Number: US-BRISTOL-MYERS SQUIBB COMPANY-16323487

PATIENT
  Age: 31 Year
  Sex: Female
  Weight: 61 kg

DRUGS (10)
  1. ABILIFY [Suspect]
  2. GABAPENTIN [Suspect]
     Indication: GENERALISED ANXIETY DISORDER
     Dosage: RED TO 300MG/DAY
     Dates: start: 20111128, end: 20111128
  3. XANAX [Suspect]
     Indication: BIPOLAR DISORDER
     Dosage: XANAX XR
  4. GABAPENTIN [Suspect]
     Indication: DEPRESSION
     Dosage: RED TO 300MG/DAY
     Dates: start: 20111128, end: 20111128
  5. ADDERALL 5 [Suspect]
     Dates: end: 20111101
  6. VITAMIN B-12 [Suspect]
     Indication: MOOD SWINGS
     Dosage: INJECTION
  7. POTASSIUM CITRATE [Suspect]
     Indication: NEPHROLITHIASIS
  8. GABAPENTIN [Suspect]
     Indication: BIPOLAR DISORDER
     Dosage: RED TO 300MG/DAY
     Dates: start: 20111128, end: 20111128
  9. GABAPENTIN [Suspect]
     Indication: POST-TRAUMATIC STRESS DISORDER
     Dosage: RED TO 300MG/DAY
     Dates: start: 20111128, end: 20111128
  10. NEOCON [Suspect]
     Indication: CONTRACEPTION

REACTIONS (16)
  - VISUAL IMPAIRMENT [None]
  - DIZZINESS [None]
  - NIGHTMARE [None]
  - FATIGUE [None]
  - DYSKINESIA [None]
  - MOOD SWINGS [None]
  - COORDINATION ABNORMAL [None]
  - AMNESIA [None]
  - DISORIENTATION [None]
  - ADVERSE EVENT [None]
  - SPEECH DISORDER [None]
  - TREMOR [None]
  - FEELING ABNORMAL [None]
  - PYREXIA [None]
  - HEADACHE [None]
  - SOMNOLENCE [None]
